FAERS Safety Report 8816383 (Version 1)
Quarter: 2012Q4

REPORT INFORMATION
  Report Type: Spontaneous
  Country: US (occurrence: None)
  Receive Date: 20120928
  Receipt Date: 20120928
  Transmission Date: 20130627
  Serious: Yes (Hospitalization)
  Sender: FDA-Public Use
  Company Number: None

PATIENT
  Age: 71 Year
  Sex: Female
  Weight: 107.4 kg

DRUGS (18)
  1. ASA [Suspect]
     Indication: PROPHYLAXIS
     Route: 048
  2. COUMADIN [Suspect]
     Indication: DVT
     Route: 048
  3. COUMADIN [Suspect]
     Indication: PULMONARY EMBOLISM
     Route: 048
  4. LOVENOX [Suspect]
     Indication: DVT
     Route: 058
  5. LOVENOX [Suspect]
     Indication: PULMONARY EMBOLISM
     Route: 058
  6. MICARDIS HCT [Concomitant]
  7. OXYBUTYNIN [Concomitant]
  8. OMEPRAZOLE [Concomitant]
  9. VIT D [Concomitant]
  10. LASIX [Concomitant]
  11. ALBUTEROL HFA [Concomitant]
  12. KCL [Concomitant]
  13. CA [Concomitant]
  14. MGCD265 KINASE INHIBITOR [Concomitant]
  15. FOLIC ACID [Concomitant]
  16. TUSSICAPS [Concomitant]
  17. SPIRIVA [Concomitant]
  18. ALBUTEROL [Concomitant]

REACTIONS (6)
  - Upper gastrointestinal haemorrhage [None]
  - Haemorrhagic anaemia [None]
  - Hypovolaemia [None]
  - Gastric disorder [None]
  - Nodule [None]
  - Metastases to stomach [None]
